FAERS Safety Report 6884346-3 (Version None)
Quarter: 2010Q3

REPORT INFORMATION
  Report Type: 
  Country: None (occurrence: None)
  Receive Date: 20100729
  Receipt Date: 20070702
  Transmission Date: 20110219
  Serious: Yes (Hospitalization, Disabling)
  Sender: FDA-Public Use
  Company Number: US-PFIZER INC-2007054946

PATIENT
  Sex: Male
  Weight: 89.8 kg

DRUGS (1)
  1. CELEBREX [Suspect]
     Indication: ARTHRITIS
     Dosage: 1-2 TIMES PER DAY
     Dates: start: 19981001, end: 20020201

REACTIONS (1)
  - CEREBROVASCULAR ACCIDENT [None]
